FAERS Safety Report 8977154 (Version 1)
Quarter: 2012Q4

REPORT INFORMATION
  Report Type: 
  Country: AU (occurrence: AU)
  Receive Date: 20121220
  Receipt Date: 20121220
  Transmission Date: 20130627
  Serious: Yes (Hospitalization)
  Sender: FDA-Public Use
  Company Number: AU-ELI_LILLY_AND_COMPANY-AU201212004789

PATIENT
  Age: 81 Year
  Sex: Female

DRUGS (1)
  1. FORTEO [Suspect]
     Indication: OSTEOPOROSIS
     Dosage: 20ug, daily
     Dates: start: 20110714

REACTIONS (4)
  - Ligament injury [Recovered/Resolved]
  - Tendon injury [Recovered/Resolved]
  - Patella fracture [Recovered/Resolved]
  - Accident [Recovered/Resolved]
